FAERS Safety Report 7139425-2 (Version None)
Quarter: 2010Q4

REPORT INFORMATION
  Report Type: 
  Country: None (occurrence: None)
  Receive Date: 20101206
  Receipt Date: 20101123
  Transmission Date: 20110411
  Serious: Yes (Death)
  Sender: FDA-Public Use
  Company Number: US-WATSON-2010-15352

PATIENT
  Age: 42 Year
  Sex: Female

DRUGS (2)
  1. DIPHENHYDRAMINE HCL [Suspect]
     Indication: POISONING
     Dosage: UNK
     Route: 048
  2. ACETAMINOPHEN [Suspect]
     Indication: POISONING
     Dosage: UNK
     Route: 048

REACTIONS (3)
  - CIRCULATORY COLLAPSE [None]
  - OVERDOSE [None]
  - SINUS TACHYCARDIA [None]
